FAERS Safety Report 5086788-8 (Version None)
Quarter: 2006Q3

REPORT INFORMATION
  Report Type: 
  Country: None (occurrence: None)
  Receive Date: 20060823
  Receipt Date: 20060801
  Transmission Date: 20061208
  Serious: Yes (Death, Other)
  Sender: FDA-Public Use
  Company Number: 2006GB01330

PATIENT
  Age: 72 Year
  Sex: Male

DRUGS (2)
  1. LIGNOCAINE [Suspect]
     Dosage: 2% IN ERROR INSTEAD OF 1%
     Route: 065
  2. UNSPECIFIED [Concomitant]
     Indication: SEDATION

REACTIONS (6)
  - COLON GANGRENE [None]
  - GRAND MAL CONVULSION [None]
  - INTESTINAL GANGRENE [None]
  - INTESTINAL INFARCTION [None]
  - MEDICATION ERROR [None]
  - MYOCARDIAL INFARCTION [None]
